FAERS Safety Report 9371503 (Version 1)
Quarter: 2013Q2

REPORT INFORMATION
  Report Type: Spontaneous
  Country: US (occurrence: None)
  Receive Date: 20130626
  Receipt Date: 20130626
  Transmission Date: 20140414
  Serious: Yes (Hospitalization)
  Sender: FDA-Public Use
  Company Number: None

PATIENT
  Age: 39 Year
  Sex: Male
  Weight: 78.5 kg

DRUGS (1)
  1. VARENICLINE [Suspect]
     Indication: THERAPY CESSATION

REACTIONS (4)
  - Suicide attempt [None]
  - Overdose [None]
  - Stress [None]
  - Affective disorder [None]
